FAERS Safety Report 21176992 (Version 1)
Quarter: 2022Q3

REPORT INFORMATION
  Report Type: Spontaneous
  Country: US (occurrence: None)
  Receive Date: 20220804
  Receipt Date: 20220804
  Transmission Date: 20221026
  Serious: Yes (Other)
  Sender: FDA-Public Use
  Company Number: None

PATIENT
  Age: 29 Year
  Sex: Female
  Weight: 80.59 kg

DRUGS (2)
  1. OLANZAPINE [Suspect]
     Active Substance: OLANZAPINE
     Dosage: FREQUENCY : DAILY;?
     Route: 048
     Dates: start: 20220316, end: 20220422
  2. OLANZAPINE [Suspect]
     Active Substance: OLANZAPINE
     Dosage: FREQUENCY : AT BEDTIME;?
     Route: 048
     Dates: start: 20220419, end: 20220422

REACTIONS (2)
  - Neutrophil count decreased [None]
  - Refusal of treatment by patient [None]

NARRATIVE: CASE EVENT DATE: 20220419
